FAERS Safety Report 10718869 (Version 2)
Quarter: 2015Q1

REPORT INFORMATION
  Report Type: Spontaneous
  Country: US (occurrence: US)
  Receive Date: 20150119
  Receipt Date: 20150119
  Transmission Date: 20150721
  Serious: No
  Sender: FDA-Public Use
  Company Number: US-UNITED THERAPEUTICS-UNT-2014-002384

PATIENT
  Sex: Female
  Weight: 58.96 kg

DRUGS (4)
  1. REVATIO [Concomitant]
     Active Substance: SILDENAFIL CITRATE
     Indication: PRODUCT USED FOR UNKNOWN INDICATION
  2. LETAIRIS [Suspect]
     Active Substance: AMBRISENTAN
     Indication: PRODUCT USED FOR UNKNOWN INDICATION
     Route: 065
  3. WARFARIN [Concomitant]
     Active Substance: WARFARIN
     Indication: PRODUCT USED FOR UNKNOWN INDICATION
  4. REMODULIN [Suspect]
     Active Substance: TREPROSTINIL
     Indication: PULMONARY ARTERIAL HYPERTENSION
     Dosage: 0.084 ?G/KG/MIN, CONTINUING
     Route: 041
     Dates: start: 20080710

REACTIONS (8)
  - Hypersensitivity [Unknown]
  - Dizziness [Unknown]
  - Injection site irritation [Unknown]
  - Dermatitis contact [Unknown]
  - Injection site pruritus [Unknown]
  - Pruritus [Unknown]
  - Injection site erythema [Unknown]
  - Gait disturbance [Unknown]
